FAERS Safety Report 17388353 (Version 2)
Quarter: 2020Q2

REPORT INFORMATION
  Report Type: Spontaneous
  Country: US (occurrence: US)
  Receive Date: 20200206
  Receipt Date: 20200421
  Transmission Date: 20200713
  Serious: No
  Sender: FDA-Public Use
  Company Number: US-ACTELION-A-US2020-200966

PATIENT
  Age: 76 Year
  Sex: Female

DRUGS (1)
  1. OPSUMIT [Suspect]
     Active Substance: MACITENTAN
     Indication: PULMONARY ARTERIAL HYPERTENSION
     Dosage: 10 MG, QD
     Route: 048
     Dates: start: 20200111, end: 20200121

REACTIONS (4)
  - Cough [Unknown]
  - Sneezing [Unknown]
  - Sinusitis [Unknown]
  - Productive cough [Unknown]

NARRATIVE: CASE EVENT DATE: 20200116
